FAERS Safety Report 14838788 (Version 1)
Quarter: 2018Q2

REPORT INFORMATION
  Report Type: Spontaneous
  Country: US (occurrence: US)
  Receive Date: 20180418
  Receipt Date: 20180418
  Transmission Date: 20180711
  Serious: Yes (Death)
  Sender: FDA-Public Use
  Company Number: None

PATIENT
  Age: 66 Year
  Sex: Female

DRUGS (1)
  1. DEXAMETHASONE. [Suspect]
     Active Substance: DEXAMETHASONE
     Indication: PANCREATIC CARCINOMA
     Dosage: ?          OTHER FREQUENCY:DEXAMETHASONE;?
     Route: 042
     Dates: start: 20171101, end: 20171227

REACTIONS (1)
  - Death [None]

NARRATIVE: CASE EVENT DATE: 20180416
